FAERS Safety Report 19479376 (Version 1)
Quarter: 2021Q3

REPORT INFORMATION
  Report Type: Spontaneous
  Country: CA (occurrence: CA)
  Receive Date: 20210701
  Receipt Date: 20210701
  Transmission Date: 20211014
  Serious: Yes (Other)
  Sender: FDA-Public Use
  Company Number: CA-SAMSUNG BIOEPIS-SB-2021-15519

PATIENT
  Age: 36 Year
  Sex: Male

DRUGS (1)
  1. INFLIXIMAB [Suspect]
     Active Substance: INFLIXIMAB
     Indication: CROHN^S DISEASE
     Route: 042

REACTIONS (16)
  - Gingivitis [Recovered/Resolved]
  - Productive cough [Recovered/Resolved]
  - Abdominal discomfort [Recovered/Resolved]
  - Tooth infection [Recovered/Resolved]
  - Arthralgia [Recovered/Resolved]
  - Chest discomfort [Recovered/Resolved]
  - Condition aggravated [Recovered/Resolved]
  - Illness [Recovered/Resolved]
  - Intentional product use issue [Recovered/Resolved]
  - Cough [Recovered/Resolved]
  - Fear of injection [Recovered/Resolved]
  - Loss of consciousness [Recovered/Resolved]
  - Off label use [Recovered/Resolved]
  - Product use issue [Recovered/Resolved]
  - Diarrhoea [Recovered/Resolved]
  - Ear pain [Recovered/Resolved]
